FAERS Safety Report 7977859-4 (Version None)
Quarter: 2011Q4

REPORT INFORMATION
  Report Type: 
  Country: None (occurrence: None)
  Receive Date: 20111214
  Receipt Date: 20111201
  Transmission Date: 20120403
  Serious: No
  Sender: FDA-Public Use
  Company Number: US-AMGEN-USASP2011056167

PATIENT
  Age: 66 Year
  Sex: Female

DRUGS (1)
  1. ENBREL [Suspect]
     Indication: RHEUMATOID ARTHRITIS
     Dosage: 50 MG, QWK
     Dates: start: 20110915, end: 20111027

REACTIONS (5)
  - FATIGUE [None]
  - PNEUMONIA [None]
  - COUGH [None]
  - RESPIRATORY TRACT CONGESTION [None]
  - HEADACHE [None]
